FAERS Safety Report 7865861-2 (Version None)
Quarter: 2011Q4

REPORT INFORMATION
  Report Type: 
  Country: None (occurrence: None)
  Receive Date: 20111028
  Receipt Date: 20110310
  Transmission Date: 20120403
  Serious: No
  Sender: FDA-Public Use
  Company Number: US-GLAXOSMITHKLINE-A0917565A

PATIENT
  Age: 82 Year
  Sex: Female

DRUGS (4)
  1. EYE DROPS [Concomitant]
  2. CALCIUM CARBONATE [Concomitant]
  3. ASPIRIN [Concomitant]
  4. ADVAIR DISKUS 100/50 [Suspect]
     Indication: CHRONIC OBSTRUCTIVE PULMONARY DISEASE
     Dosage: 1PUFF TWICE PER DAY
     Route: 055
     Dates: start: 20030101

REACTIONS (5)
  - FEELING ABNORMAL [None]
  - NERVOUSNESS [None]
  - PRODUCT QUALITY ISSUE [None]
  - DIZZINESS [None]
  - DRY MOUTH [None]
